FAERS Safety Report 19613435 (Version 1)
Quarter: 2021Q3

REPORT INFORMATION
  Report Type: Spontaneous
  Country: US (occurrence: US)
  Receive Date: 20210726
  Receipt Date: 20210726
  Transmission Date: 20211014
  Serious: Yes (Disabling)
  Sender: FDA-Public Use
  Company Number: None

PATIENT
  Age: 29 Year
  Sex: Male
  Weight: 67.5 kg

DRUGS (1)
  1. KRATOM [Suspect]
     Active Substance: HERBALS\MITRAGYNINE
     Indication: DRUG DEPENDENCE

REACTIONS (5)
  - Drug dependence [None]
  - Headache [None]
  - Withdrawal syndrome [None]
  - Vomiting [None]
  - Gastric disorder [None]

NARRATIVE: CASE EVENT DATE: 20210101
